FAERS Safety Report 14300522 (Version 11)
Quarter: 2018Q2

REPORT INFORMATION
  Report Type: Report from Study
  Country: LV (occurrence: LV)
  Receive Date: 20171219
  Receipt Date: 20180626
  Transmission Date: 20180711
  Serious: Yes (Death, Hospitalization)
  Sender: FDA-Public Use
  Company Number: LV-ROCHE-2041173

PATIENT
  Age: 73 Year
  Sex: Male
  Weight: 72 kg

DRUGS (24)
  1. LEXOTANIL [Concomitant]
     Active Substance: BROMAZEPAM
     Route: 048
     Dates: start: 20171122
  2. METFORMIN [Concomitant]
     Active Substance: METFORMIN HYDROCHLORIDE
     Indication: PRODUCT USED FOR UNKNOWN INDICATION
     Route: 048
     Dates: start: 201709
  3. ULTRACOD [Concomitant]
     Indication: PRODUCT USED FOR UNKNOWN INDICATION
     Dosage: 500MG/30MG
     Route: 048
     Dates: start: 20171101
  4. HJERTEMAGNYL [Concomitant]
     Active Substance: ASPIRIN\MAGNESIUM OXIDE
     Indication: MYOCARDIAL INFARCTION
     Route: 048
     Dates: start: 2013
  5. SPIRIX [Concomitant]
     Active Substance: SPIRONOLACTONE
     Indication: ATRIAL FIBRILLATION
     Route: 048
     Dates: start: 20171207
  6. DEXAMETHASONE. [Concomitant]
     Active Substance: DEXAMETHASONE
     Route: 042
     Dates: start: 20171122
  7. TAZOCIN [Concomitant]
     Active Substance: PIPERACILLIN SODIUM\TAZOBACTAM SODIUM
     Indication: INFECTIOUS PLEURAL EFFUSION
     Route: 042
     Dates: start: 20180302
  8. ETOPOSIDE. [Suspect]
     Active Substance: ETOPOSIDE
     Route: 042
     Dates: start: 20180125
  9. FUROSEMIDE. [Concomitant]
     Active Substance: FUROSEMIDE
     Indication: ATRIAL FIBRILLATION
     Route: 048
     Dates: start: 20171208
  10. ATEZOLIZUMAB. [Suspect]
     Active Substance: ATEZOLIZUMAB
     Dosage: ON DAY 1 OF EACH 21-DAY CYCLE.
     Route: 042
     Dates: start: 20180123
  11. BLINDED TRILACICLIB [Suspect]
     Active Substance: TRILACICLIB
     Indication: SMALL CELL LUNG CANCER
     Dosage: ONCE DAILY ON DAYS 1, 2 AND 3 OF EACH 21-DAY
     Route: 042
     Dates: start: 20171122
  12. BLINDED TRILACICLIB [Suspect]
     Active Substance: TRILACICLIB
     Route: 042
     Dates: start: 20180125
  13. DIGOXINUM [Concomitant]
     Indication: ATRIAL FIBRILLATION
     Route: 048
     Dates: start: 20171207
  14. ATEZOLIZUMAB. [Suspect]
     Active Substance: ATEZOLIZUMAB
     Indication: SMALL CELL LUNG CANCER
     Dosage: ON DAY 1 OF EACH 21-DAY CYCLE.
     Route: 042
     Dates: start: 20171122
  15. CARBOPLATIN. [Suspect]
     Active Substance: CARBOPLATIN
     Indication: SMALL CELL LUNG CANCER
     Dosage: WOULD BE ADMINISTERED ON DAY 1 OF EACH 21-DAY CYCLE CALVERT FORMULA WITH A TARGET AUC = 5 MILLIGRAMS
     Route: 042
     Dates: start: 20171122
  16. NEBILET [Concomitant]
     Active Substance: NEBIVOLOL
     Indication: MYOCARDIAL INFARCTION
     Route: 048
     Dates: start: 2013, end: 20171129
  17. ONDANSETRON [Concomitant]
     Active Substance: ONDANSETRON
     Route: 042
     Dates: start: 20171122
  18. CARBOPLATIN. [Suspect]
     Active Substance: CARBOPLATIN
     Dosage: CALVERT FORMULA WITH A TARGET AUC = 4 MILLIGRAMS PER MILLILITER PER MINUTE (MG/ML/MIN) TO CALCULATE
     Route: 042
     Dates: start: 20180123
  19. ATORVASTATIN [Concomitant]
     Active Substance: ATORVASTATIN
     Indication: DYSLIPIDAEMIA
     Route: 048
     Dates: start: 2013
  20. BISOPROLOL [Concomitant]
     Active Substance: BISOPROLOL
     Indication: ATRIAL FIBRILLATION
     Route: 048
     Dates: start: 20171130
  21. ETOPOSIDE. [Suspect]
     Active Substance: ETOPOSIDE
     Indication: SMALL CELL LUNG CANCER
     Dosage: 100 MG/M2 WILL BE ADMINISTERED IV DAILY ON DAYS 1, 2, AND 3 OF EACH 21-DAY CYCLE.
     Route: 042
     Dates: start: 20171122
  22. NOLIPREL FORTE [Concomitant]
     Indication: ESSENTIAL HYPERTENSION
     Dosage: 5MG/1.25MG
     Route: 048
     Dates: start: 2013
  23. AUGMENTIN [Concomitant]
     Active Substance: AMOXICILLIN\CLAVULANATE POTASSIUM
     Indication: FEBRILE NEUTROPENIA
     Dosage: 875/125 MG
     Route: 048
     Dates: start: 20171207, end: 20171210
  24. AUGMENTIN [Concomitant]
     Active Substance: AMOXICILLIN\CLAVULANATE POTASSIUM
     Dosage: 875/125 MG
     Route: 048
     Dates: start: 20180206

REACTIONS (4)
  - Thrombocytopenia [Recovered/Resolved]
  - Neutropenia [Recovered/Resolved]
  - Febrile neutropenia [Recovered/Resolved]
  - Anaemia [Recovered/Resolved]

NARRATIVE: CASE EVENT DATE: 20171203
